FAERS Safety Report 8268534-X (Version None)
Quarter: 2012Q2

REPORT INFORMATION
  Report Type: 
  Country: None (occurrence: None)
  Receive Date: 20120409
  Receipt Date: 20120316
  Transmission Date: 20120825
  Serious: Yes (Hospitalization)
  Sender: FDA-Public Use
  Company Number: PL-GLAXOSMITHKLINE-B0788789A

PATIENT
  Age: 40 Year
  Sex: Female

DRUGS (3)
  1. LAMIVUDINE (EPIVIR HBV) [Suspect]
     Indication: HEPATITIS B
     Route: 048
     Dates: start: 20070101
  2. ADEFOVIR DIPIVOXIL [Suspect]
     Indication: HEPATITIS B
     Dosage: 10MG PER DAY
     Route: 065
     Dates: start: 20080527, end: 20081024
  3. ADEFOVIR DIPIVOXIL [Suspect]
     Dosage: 1IUAX TWICE PER DAY
     Route: 048
     Dates: start: 20081024, end: 20100126

REACTIONS (1)
  - RENAL FAILURE [None]
